FAERS Safety Report 5403777-1 (Version None)
Quarter: 2007Q3

REPORT INFORMATION
  Report Type: 
  Country: None (occurrence: None)
  Receive Date: 20070731
  Receipt Date: 20070731
  Transmission Date: 20080115
  Serious: Yes (Life-Threatening)
  Sender: FDA-Public Use
  Company Number: None

PATIENT
  Age: 63 Year
  Sex: Female
  Weight: 62.5964 kg

DRUGS (1)
  1. ETANERCEPT(AMGEN) 50MG Q WK [Suspect]
     Indication: PSORIASIS
     Dosage: 50MG QW SQ
     Route: 058
     Dates: start: 20040101, end: 20070101

REACTIONS (1)
  - HODGKIN'S DISEASE [None]
